FAERS Safety Report 4716940-X (Version None)
Quarter: 2005Q3

REPORT INFORMATION
  Report Type: 
  Country: None (occurrence: None)
  Receive Date: 20050714
  Receipt Date: 20050706
  Transmission Date: 20060218
  Serious: Yes (Death, Hospitalization)
  Sender: FDA-Public Use
  Company Number: 163-20785-05060304

PATIENT
  Age: 71 Year
  Sex: Male

DRUGS (10)
  1. THALOMID [Suspect]
     Indication: MULTIPLE MYELOMA
     Dosage: SEE IMAGE
     Route: 048
     Dates: start: 20050330, end: 20050405
  2. THALOMID [Suspect]
     Indication: MULTIPLE MYELOMA
     Dosage: SEE IMAGE
     Route: 048
     Dates: start: 20050406, end: 20050413
  3. THALOMID [Suspect]
     Indication: MULTIPLE MYELOMA
     Dosage: SEE IMAGE
     Route: 048
     Dates: start: 20050414, end: 20050420
  4. THALOMID [Suspect]
     Indication: MULTIPLE MYELOMA
     Dosage: SEE IMAGE
     Route: 048
     Dates: start: 20050421, end: 20050526
  5. ZOMETA [Concomitant]
  6. LASIX [Concomitant]
  7. MIRALAX [Concomitant]
  8. DECADRON [Concomitant]
  9. DIFLUCAN [Concomitant]
  10. NEXIUM [Concomitant]

REACTIONS (2)
  - DIVERTICULAR PERFORATION [None]
  - INTESTINAL PERFORATION [None]
